FAERS Safety Report 7903783-9 (Version None)
Quarter: 2011Q4

REPORT INFORMATION
  Report Type: 
  Country: None (occurrence: None)
  Receive Date: 20111109
  Receipt Date: 20111102
  Transmission Date: 20120403
  Serious: Yes (Other)
  Sender: FDA-Public Use
  Company Number: ES-UCBSA-044757

PATIENT
  Age: 39 Year
  Sex: Female

DRUGS (2)
  1. ESCITALOPRAM [Suspect]
     Dosage: UNKNOWN DOSE
     Route: 048
     Dates: start: 20110101
  2. KEPPRA [Suspect]
     Route: 048
     Dates: start: 20110603

REACTIONS (1)
  - AMENORRHOEA [None]
